FAERS Safety Report 5869071-X (Version None)
Quarter: 2008Q3

REPORT INFORMATION
  Report Type: 
  Country: None (occurrence: None)
  Receive Date: 20080903
  Receipt Date: 20080901
  Transmission Date: 20090109
  Serious: Yes (Hospitalization)
  Sender: FDA-Public Use
  Company Number: B0535103A

PATIENT
  Age: 83 Year
  Sex: Female

DRUGS (1)
  1. ARIXTRA [Suspect]
     Indication: DRUG USE FOR UNKNOWN INDICATION
     Dosage: 2.5MG PER DAY
     Route: 058
     Dates: start: 20080718, end: 20080728

REACTIONS (1)
  - STEVENS-JOHNSON SYNDROME [None]
